FAERS Safety Report 7741237-3 (Version None)
Quarter: 2011Q3

REPORT INFORMATION
  Report Type: 
  Country: None (occurrence: None)
  Receive Date: 20110909
  Receipt Date: 20110902
  Transmission Date: 20111222
  Serious: Yes (Life-Threatening)
  Sender: FDA-Public Use
  Company Number: US-US-EMD SERONO, INC.-7080553

PATIENT
  Sex: Female
  Weight: 75 kg

DRUGS (3)
  1. REBIF [Suspect]
  2. REBIF [Suspect]
     Indication: MULTIPLE SCLEROSIS
     Route: 058
     Dates: start: 20081128, end: 20090801
  3. REBIF [Suspect]
     Route: 058

REACTIONS (6)
  - INJECTION SITE URTICARIA [None]
  - INJECTION SITE ERYTHEMA [None]
  - DYSPNOEA [None]
  - GALLBLADDER PERFORATION [None]
  - ORAL DISCOMFORT [None]
  - MUSCLE SPASMS [None]
